FAERS Safety Report 6293109-1 (Version None)
Quarter: 2009Q3

REPORT INFORMATION
  Report Type: 
  Country: None (occurrence: None)
  Receive Date: 20090731
  Receipt Date: 20090730
  Transmission Date: 20100115
  Serious: Yes (Hospitalization)
  Sender: FDA-Public Use
  Company Number: FR-JNJFOC-20090708377

PATIENT
  Sex: Female

DRUGS (11)
  1. TOPALGIC [Suspect]
     Indication: MUSCULOSKELETAL PAIN
     Route: 065
  2. MORPHINE [Suspect]
     Indication: MUSCULOSKELETAL PAIN
     Route: 042
  3. ACUPAN [Concomitant]
     Route: 065
  4. HYDROCORTISONUM HEMISUCCINATUM [Concomitant]
     Route: 065
  5. LEVOTHYROX [Concomitant]
     Route: 065
  6. FLUANXOL (FLUPENTIXOL) [Concomitant]
     Route: 065
  7. LEPTICUR [Concomitant]
     Route: 065
  8. XANAX [Concomitant]
     Route: 065
  9. SERETIDE [Concomitant]
     Route: 065
  10. FORADIL [Concomitant]
     Route: 065
  11. PULMOZYME [Concomitant]
     Route: 065

REACTIONS (1)
  - INTESTINAL OBSTRUCTION [None]
